FAERS Safety Report 13031562 (Version 1)
Quarter: 2016Q4

REPORT INFORMATION
  Report Type: Spontaneous
  Country: JP (occurrence: JP)
  Receive Date: 20161215
  Receipt Date: 20161215
  Transmission Date: 20170207
  Serious: Yes (Other)
  Sender: FDA-Public Use
  Company Number: JP-MYLANLABS-2016M1055339

PATIENT

DRUGS (2)
  1. LEUPRORELIN [Suspect]
     Active Substance: LEUPROLIDE ACETATE
     Indication: PROSTATE CANCER
     Dosage: 3.75 MG, QD
     Route: 065
  2. BICALUTAMIDE. [Suspect]
     Active Substance: BICALUTAMIDE
     Indication: PROSTATE CANCER
     Dosage: 80 MG, QD
     Route: 065

REACTIONS (6)
  - Tubulointerstitial nephritis [Recovering/Resolving]
  - Hepatic function abnormal [Recovering/Resolving]
  - Renal failure [Recovering/Resolving]
  - Multiple organ dysfunction syndrome [Recovering/Resolving]
  - Respiratory symptom [Recovering/Resolving]
  - Interstitial lung disease [Recovering/Resolving]
